FAERS Safety Report 12205652 (Version 1)
Quarter: 2016Q1

REPORT INFORMATION
  Report Type: Spontaneous
  Country: US (occurrence: US)
  Receive Date: 20160323
  Receipt Date: 20160323
  Transmission Date: 20160526
  Serious: Yes (Other)
  Sender: FDA-Public Use
  Company Number: US-ASTRAZENECA-2012BM08046

PATIENT
  Age: 26542 Day
  Sex: Male
  Weight: 105.2 kg

DRUGS (5)
  1. METFORMIN [Concomitant]
     Active Substance: METFORMIN HYDROCHLORIDE
     Indication: TYPE 2 DIABETES MELLITUS
  2. BYDUREON [Suspect]
     Active Substance: EXENATIDE
     Indication: TYPE 2 DIABETES MELLITUS
     Dosage: BYDUREON KIT  2 MG ONCE A WEEK
     Route: 058
     Dates: start: 201202
  3. ACTOS [Concomitant]
     Active Substance: PIOGLITAZONE HYDROCHLORIDE
     Indication: TYPE 2 DIABETES MELLITUS
  4. LANTUS [Concomitant]
     Active Substance: INSULIN GLARGINE
     Dosage: 15-20 UNITS AT NIGHT AS REQUIRED
  5. BYDUREON [Suspect]
     Active Substance: EXENATIDE
     Indication: TYPE 2 DIABETES MELLITUS
     Dosage: PEN 2 MG ONCE A WEEK
     Route: 058
     Dates: start: 2010

REACTIONS (3)
  - Blood glucose increased [Recovered/Resolved]
  - Bladder cancer [Unknown]
  - Injection site nodule [Unknown]

NARRATIVE: CASE EVENT DATE: 201105
